FAERS Safety Report 9561649 (Version 2)
Quarter: 2014Q3

REPORT INFORMATION
  Report Type: Spontaneous
  Country: US (occurrence: US)
  Receive Date: 20130927
  Receipt Date: 20140910
  Transmission Date: 20150326
  Serious: No
  Sender: FDA-Public Use
  Company Number: US-BIOGENIDEC-2013BI061912

PATIENT
  Age: 61 Year
  Sex: Female

DRUGS (2)
  1. TECFIDERA [Suspect]
     Active Substance: DIMETHYL FUMARATE
     Indication: MULTIPLE SCLEROSIS
     Route: 048
     Dates: start: 20130627
  2. TECFIDERA [Suspect]
     Active Substance: DIMETHYL FUMARATE
     Indication: MULTIPLE SCLEROSIS
     Route: 048
     Dates: start: 20130921, end: 20140820

REACTIONS (6)
  - Muscle spasms [Unknown]
  - Pruritus [Unknown]
  - Flushing [Recovered/Resolved]
  - Chills [Unknown]
  - Rash erythematous [Unknown]
  - Erythema [Unknown]

NARRATIVE: CASE EVENT DATE: 20130627
